FAERS Safety Report 16763535 (Version 2)
Quarter: 2019Q3

REPORT INFORMATION
  Report Type: Spontaneous
  Country: US (occurrence: US)
  Receive Date: 20190902
  Receipt Date: 20190919
  Transmission Date: 20191005
  Serious: Yes (Other)
  Sender: FDA-Public Use
  Company Number: US-PFIZER INC-2019372615

PATIENT
  Age: 56 Year

DRUGS (1)
  1. REVATIO [Suspect]
     Active Substance: SILDENAFIL CITRATE
     Dosage: 40 MG, THREE TIMES A DAY (2 20MG 3 TIMES A DAY)
     Dates: start: 2005

REACTIONS (4)
  - Limb discomfort [Unknown]
  - Kidney infection [Unknown]
  - Malaise [Unknown]
  - Contusion [Unknown]
